FAERS Safety Report 21861855 (Version 2)
Quarter: 2023Q1

REPORT INFORMATION
  Report Type: Spontaneous
  Country: US (occurrence: US)
  Receive Date: 20230113
  Receipt Date: 20230309
  Transmission Date: 20230417
  Serious: Yes (Other)
  Sender: FDA-Public Use
  Company Number: US-TEVA-2023-US-2846158

PATIENT
  Age: 48 Year
  Sex: Female
  Weight: 63.96 kg

DRUGS (13)
  1. AMLODIPINE\HYDROCHLOROTHIAZIDE\VALSARTAN [Suspect]
     Active Substance: AMLODIPINE\HYDROCHLOROTHIAZIDE\VALSARTAN
     Indication: Hypertension
     Dosage: 5-160-12.5 MG
     Route: 065
     Dates: start: 20170227, end: 20180512
  2. VALSARTAN [Suspect]
     Active Substance: VALSARTAN
     Indication: Hypertension
     Dosage: 160MG
     Route: 065
     Dates: start: 20140722, end: 20150116
  3. VALSARTAN [Suspect]
     Active Substance: VALSARTAN
     Indication: Hypertension
     Dosage: 160MG
     Route: 065
     Dates: start: 20150317, end: 20151028
  4. VALSARTAN [Suspect]
     Active Substance: VALSARTAN
     Indication: Hypertension
     Dosage: 160MG
     Route: 065
     Dates: start: 20151205, end: 20160223
  5. AMLODIPINE\HYDROCHLOROTHIAZIDE\VALSARTAN [Suspect]
     Active Substance: AMLODIPINE\HYDROCHLOROTHIAZIDE\VALSARTAN
     Indication: Hypertension
     Dosage: 5-160-12.5MG
     Route: 065
     Dates: start: 20180616, end: 201808
  6. AMLODIPINE\HYDROCHLOROTHIAZIDE\VALSARTAN [Suspect]
     Active Substance: AMLODIPINE\HYDROCHLOROTHIAZIDE\VALSARTAN
     Indication: Hypertension
     Dosage: 5-160-12.5MG
     Route: 065
     Dates: start: 20180926, end: 20200122
  7. AMLODIPINE\HYDROCHLOROTHIAZIDE\VALSARTAN [Suspect]
     Active Substance: AMLODIPINE\HYDROCHLOROTHIAZIDE\VALSARTAN
     Indication: Hypertension
     Dosage: 5-160-12.5MG
     Route: 065
     Dates: start: 20181204
  8. AMLODIPINE\HYDROCHLOROTHIAZIDE\VALSARTAN [Suspect]
     Active Substance: AMLODIPINE\HYDROCHLOROTHIAZIDE\VALSARTAN
     Indication: Hypertension
     Dosage: 5-160-12.5MG
     Route: 065
     Dates: start: 20191004, end: 20211228
  9. ATORVASTATIN [Concomitant]
     Active Substance: ATORVASTATIN
     Indication: Hyperlipidaemia
     Dosage: 10MG DAILY
  10. ALBUTEROL [Concomitant]
     Active Substance: ALBUTEROL
     Indication: Product used for unknown indication
     Dosage: 90 MCG/ACTUATION INHALER, INHALE 1 PUFF ONCE AS NEEDED
     Route: 045
  11. Fexofenadine HCI [Concomitant]
     Indication: Product used for unknown indication
     Dosage: AS NEEDED
     Route: 048
  12. FLUTICASONE PROPIONATE [Concomitant]
     Active Substance: FLUTICASONE PROPIONATE
     Indication: Product used for unknown indication
     Dosage: 2 DOSAGE FORMS DAILY; 50 MCG/ACTUATION NASAL SPRAY, 2 SPRAYS INTO EACH NOSTRIL DAILY.
     Route: 045
  13. TRIAMCINOLONE [Concomitant]
     Active Substance: TRIAMCINOLONE
     Indication: Product used for unknown indication
     Dosage: 0.5% OINTMENT APPLY 1 APPLICATION TOPICALLY AS NEEDED
     Route: 061

REACTIONS (5)
  - Pancreatic carcinoma metastatic [Not Recovered/Not Resolved]
  - Hepatic cancer metastatic [Not Recovered/Not Resolved]
  - Gastrointestinal cancer metastatic [Not Recovered/Not Resolved]
  - Peritoneal carcinoma metastatic [Not Recovered/Not Resolved]
  - Lung cancer metastatic [Not Recovered/Not Resolved]
